FAERS Safety Report 13461135 (Version 1)
Quarter: 2017Q2

REPORT INFORMATION
  Report Type: Spontaneous
  Country: NL (occurrence: NL)
  Receive Date: 20170420
  Receipt Date: 20170420
  Transmission Date: 20170830
  Serious: Yes (Other)
  Sender: FDA-Public Use
  Company Number: NL-STRIDES ARCOLAB LIMITED-2017SP006655

PATIENT

DRUGS (4)
  1. IRON SUCROSE [Suspect]
     Active Substance: IRON SUCROSE
     Indication: IRON DEFICIENCY ANAEMIA
     Dosage: 100 MG, SINGLE
     Route: 042
  2. FERROUS GLUCONATE [Suspect]
     Active Substance: FERROUS GLUCONATE
     Indication: IRON DEFICIENCY ANAEMIA
     Dosage: THREE INFUSIONS OF 1000 MG WITH A SIX-WEEK INTERVAL
     Route: 042
  3. CARBASALATE CALCIUM [Concomitant]
     Active Substance: CARBASPIRIN
     Indication: ANTICOAGULANT THERAPY
     Dosage: UNK
     Route: 065
  4. ACENOCOUMAROL [Concomitant]
     Active Substance: ACENOCOUMAROL
     Indication: ANTIPHOSPHOLIPID SYNDROME
     Dosage: UNK
     Route: 065

REACTIONS (1)
  - Hypophosphataemia [Recovered/Resolved]
